FAERS Safety Report 9413533 (Version 1)
Quarter: 2013Q2

REPORT INFORMATION
  Report Type: Spontaneous
  Country: US (occurrence: None)
  Receive Date: 20130425
  Receipt Date: 20130425
  Transmission Date: 20140414
  Serious: No
  Sender: FDA-Public Use
  Company Number: 37053

PATIENT
  Age: 56 Year
  Sex: Female

DRUGS (1)
  1. GLASSIA [Suspect]
     Indication: ALPHA-1 ANTI-TRYPSIN DEFICIENCY
     Route: 042
     Dates: start: 20120418

REACTIONS (2)
  - Cataract operation [None]
  - Abnormal sensation in eye [None]
